FAERS Safety Report 6449315-6 (Version None)
Quarter: 2009Q4

REPORT INFORMATION
  Report Type: 
  Country: None (occurrence: None)
  Receive Date: 20091120
  Receipt Date: 20091120
  Transmission Date: 20100525
  Serious: Yes (Hospitalization)
  Sender: FDA-Public Use
  Company Number: US-ABBOTT-09P-163-0607900-00

PATIENT
  Sex: Male
  Weight: 90.8 kg

DRUGS (19)
  1. NIASPAN [Suspect]
     Indication: HIGH DENSITY LIPOPROTEIN DECREASED
     Dates: start: 20090601, end: 20090901
  2. NIASPAN [Suspect]
     Dates: start: 20090901
  3. NIASPAN [Suspect]
  4. BIOTEEN [Concomitant]
     Indication: DRUG USE FOR UNKNOWN INDICATION
  5. ISOSORBIDE MONONITRATE [Concomitant]
     Indication: DRUG USE FOR UNKNOWN INDICATION
  6. TOPROL-XL [Concomitant]
     Indication: DRUG USE FOR UNKNOWN INDICATION
  7. ALLEGRA [Concomitant]
     Indication: DRUG USE FOR UNKNOWN INDICATION
  8. KLOR-CON [Concomitant]
     Indication: DRUG USE FOR UNKNOWN INDICATION
  9. DOCUSATE [Concomitant]
     Indication: CONSTIPATION
  10. KLONOPIN [Concomitant]
     Indication: DRUG USE FOR UNKNOWN INDICATION
  11. AMBIEN CR [Concomitant]
     Indication: DRUG USE FOR UNKNOWN INDICATION
  12. ZOCOR [Concomitant]
     Indication: DRUG USE FOR UNKNOWN INDICATION
  13. FIBROLAX [Concomitant]
     Indication: DRUG USE FOR UNKNOWN INDICATION
  14. NABUMETONE [Concomitant]
     Indication: DRUG USE FOR UNKNOWN INDICATION
  15. PLAVIX [Concomitant]
     Indication: DRUG USE FOR UNKNOWN INDICATION
  16. NORVASC [Concomitant]
     Indication: DRUG USE FOR UNKNOWN INDICATION
  17. M.V.I. [Concomitant]
     Indication: DRUG USE FOR UNKNOWN INDICATION
  18. VITAMIN B-12 [Concomitant]
     Indication: DRUG USE FOR UNKNOWN INDICATION
  19. BABY ASPIRIN [Concomitant]
     Indication: DRUG USE FOR UNKNOWN INDICATION

REACTIONS (6)
  - CHEST PAIN [None]
  - CORONARY ARTERIAL STENT INSERTION [None]
  - INSOMNIA [None]
  - RASH [None]
  - SEXUAL DYSFUNCTION [None]
  - YELLOW SKIN [None]
